FAERS Safety Report 7421445-1 (Version None)
Quarter: 2011Q2

REPORT INFORMATION
  Report Type: 
  Country: None (occurrence: None)
  Receive Date: 20110418
  Receipt Date: 20110408
  Transmission Date: 20111010
  Serious: No
  Sender: FDA-Public Use
  Company Number: US-JNJFOC-20110404349

PATIENT
  Age: 43 Year
  Sex: Male
  Weight: 95.26 kg

DRUGS (3)
  1. DURAGESIC [Suspect]
     Indication: PAIN
     Route: 062
  2. PAXIL [Concomitant]
     Indication: DEPRESSION
     Route: 065
  3. ENBREL [Concomitant]
     Indication: ARTHRITIS
     Route: 065

REACTIONS (2)
  - WRONG TECHNIQUE IN DRUG USAGE PROCESS [None]
  - PRODUCT QUALITY ISSUE [None]
